FAERS Safety Report 23102542 (Version 2)
Quarter: 2023Q4

REPORT INFORMATION
  Report Type: Spontaneous
  Country: US (occurrence: None)
  Receive Date: 20231025
  Receipt Date: 20231128
  Transmission Date: 20240109
  Serious: No
  Sender: FDA-Public Use
  Company Number: 2023A234342

PATIENT

DRUGS (1)
  1. SYMBICORT [Suspect]
     Active Substance: BUDESONIDE\FORMOTEROL FUMARATE DIHYDRATE
     Dosage: 160, UNKNOWN UNKNOWN
     Route: 055

REACTIONS (9)
  - Tongue discomfort [Unknown]
  - Foaming at mouth [Unknown]
  - Tongue coated [Unknown]
  - Product after taste [Unknown]
  - Cough [Unknown]
  - Middle insomnia [Unknown]
  - Oropharyngeal discomfort [Unknown]
  - Product dose omission issue [Unknown]
  - Drug ineffective [Unknown]
